FAERS Safety Report 21748844 (Version 1)
Quarter: 2022Q4

REPORT INFORMATION
  Report Type: Spontaneous
  Country: US (occurrence: None)
  Receive Date: 20221216
  Receipt Date: 20221216
  Transmission Date: 20230113
  Serious: Yes (Death)
  Sender: FDA-Public Use
  Company Number: None

PATIENT
  Age: 89 Year
  Sex: Male
  Weight: 78.02 kg

DRUGS (23)
  1. PREDNISONE [Suspect]
     Active Substance: PREDNISONE
     Indication: Prostate cancer
     Dosage: FREQUENCY : TWICE A DAY;?
     Route: 048
     Dates: start: 20220507, end: 20221216
  2. ABIRATERONE ACETATE [Suspect]
     Active Substance: ABIRATERONE ACETATE
     Indication: Prostate cancer
     Dosage: FREQUENCY : DAILY;?
     Route: 048
     Dates: start: 20220507, end: 20221216
  3. BICALUTAMIDE [Concomitant]
     Active Substance: BICALUTAMIDE
  4. CHOLECALCIFEROL [Concomitant]
     Active Substance: CHOLECALCIFEROL
  5. COLACE [Concomitant]
     Active Substance: DOCUSATE SODIUM
  6. DULCOLAX STOOL SOFTENER [Concomitant]
     Active Substance: DOCUSATE SODIUM
  7. FINASTERIDE [Concomitant]
     Active Substance: FINASTERIDE
  8. FLEET ENEMA [Concomitant]
  9. GLUCAGON [Concomitant]
     Active Substance: GLUCAGON
  10. HYDROCHLOROTHIAZIDE [Concomitant]
     Active Substance: HYDROCHLOROTHIAZIDE
  11. METHADONE [Concomitant]
     Active Substance: METHADONE HYDROCHLORIDE
  12. METOPROLOL [Concomitant]
     Active Substance: METOPROLOL
  13. VITAMINS [Concomitant]
     Active Substance: VITAMINS
  14. NEURONTIN [Concomitant]
  15. NORCO [Concomitant]
     Active Substance: ACETAMINOPHEN\HYDROCODONE BITARTRATE
  16. NEURONTIN [Concomitant]
     Active Substance: GABAPENTIN
  17. NORCO [Concomitant]
     Active Substance: ACETAMINOPHEN\HYDROCODONE BITARTRATE
  18. SENNA [Concomitant]
     Active Substance: SENNA LEAF\SENNOSIDES\SENNOSIDES A AND B
  19. THIAMINE [Concomitant]
     Active Substance: THIAMINE
  20. TIZANIDINE [Concomitant]
     Active Substance: TIZANIDINE
  21. TYLENOL 8HR [Concomitant]
     Active Substance: ACETAMINOPHEN
  22. Vitamin B Complex Combinations [Concomitant]
  23. WARFARIN [Concomitant]
     Active Substance: WARFARIN

REACTIONS (1)
  - Death [None]

NARRATIVE: CASE EVENT DATE: 20221216
